FAERS Safety Report 5398543-X (Version None)
Quarter: 2007Q3

REPORT INFORMATION
  Report Type: 
  Country: None (occurrence: None)
  Receive Date: 20070726
  Receipt Date: 20060705
  Transmission Date: 20080115
  Serious: No
  Sender: FDA-Public Use
  Company Number: US-AMGEN-KDL185304

PATIENT
  Sex: Female
  Weight: 68.1 kg

DRUGS (5)
  1. PROCRIT [Suspect]
     Indication: ANAEMIA
     Dates: start: 20060601
  2. INSULIN [Concomitant]
  3. CRESTOR [Concomitant]
  4. MAVIK [Concomitant]
  5. METFORMIN HCL [Concomitant]

REACTIONS (1)
  - PRURITUS [None]
